FAERS Safety Report 5785458-8 (Version None)
Quarter: 2008Q2

REPORT INFORMATION
  Report Type: 
  Country: None (occurrence: None)
  Receive Date: 20080605
  Receipt Date: 20080219
  Transmission Date: 20081010
  Serious: No
  Sender: FDA-Public Use
  Company Number: A0710390A

PATIENT
  Age: 74 Year
  Sex: Female

DRUGS (2)
  1. ALLI [Suspect]
     Dates: start: 20080211
  2. LYRICA [Concomitant]

REACTIONS (1)
  - MUSCLE SPASMS [None]
